FAERS Safety Report 6604414-0 (Version None)
Quarter: 2010Q1

REPORT INFORMATION
  Report Type: 
  Country: None (occurrence: None)
  Receive Date: 20100226
  Receipt Date: 20090925
  Transmission Date: 20100710
  Serious: No
  Sender: FDA-Public Use
  Company Number: A0809081A

PATIENT
  Age: 34 Year
  Sex: Female

DRUGS (4)
  1. LAMICTAL CD [Suspect]
     Indication: BIPOLAR DISORDER
     Dosage: 125MG PER DAY
     Route: 048
     Dates: start: 20060101
  2. VYTORIN [Concomitant]
  3. ASPIRIN [Concomitant]
  4. LEXAPRO [Concomitant]

REACTIONS (2)
  - PRURITUS [None]
  - RASH [None]
